FAERS Safety Report 24037314 (Version 3)
Quarter: 2024Q3

REPORT INFORMATION
  Report Type: Report from Study
  Country: PT (occurrence: PT)
  Receive Date: 20240702
  Receipt Date: 20240716
  Transmission Date: 20241016
  Serious: Yes (Death, Other)
  Sender: ABBVIE
  Company Number: PT-ABBVIE-5818888

PATIENT
  Age: 85 Year
  Sex: Female

DRUGS (16)
  1. CARBIDOPA\LEVODOPA [Suspect]
     Active Substance: CARBIDOPA\LEVODOPA
     Indication: Parkinson^s disease
     Dosage: 20 MG + 5 MG (PEG)?FREQUENCY TEXT: MORN:16CC;MAINT:6.4CC/H;EXT:5CC
     Route: 050
     Dates: start: 20240624, end: 20240625
  2. CARBIDOPA\LEVODOPA [Suspect]
     Active Substance: CARBIDOPA\LEVODOPA
     Dosage: 20 MG + 5 MG (PEG)
     Route: 050
     Dates: start: 20240625, end: 20240711
  3. CARBIDOPA\LEVODOPA [Suspect]
     Active Substance: CARBIDOPA\LEVODOPA
     Dosage: 20 MG + 5 MG?FREQUENCY TEXT: MORN:12CC;MAINT:5.4CC/H;EXT:2CC
     Route: 050
     Dates: start: 20221027
  4. RIVASTIGMINE [Concomitant]
     Active Substance: RIVASTIGMINE
     Indication: Product used for unknown indication
     Dosage: 1 TABLET?FORM STRENGTH: 4.6 MILLIGRAM?FREQUENCY TEXT: AT BEDTIME?START DATE TEXT: BEFORE DUODOPA
     Route: 048
  5. LACTULOSE [Concomitant]
     Active Substance: LACTULOSE
     Indication: Product used for unknown indication
     Dosage: FREQUENCY TEXT: 1 TABLESPOON IN SOS? START DATE TEXT: BEFORE DUODOPA
     Route: 048
  6. SERTRALINE [Concomitant]
     Active Substance: SERTRALINE HYDROCHLORIDE
     Indication: Product used for unknown indication
     Dosage: 1 TABLET?FORM STRENGTH: 50 MILLIGRAM?FREQUENCY TEXT: AT BREAKFAST?START DATE TEXT: BEFORE DUODOPA
     Route: 048
  7. MIRTAZAPINE [Concomitant]
     Active Substance: MIRTAZAPINE
     Indication: Product used for unknown indication
     Dosage: 1 TABLET?FORM STRENGTH: 30 MG?FREQUENCY TEXT: AT BEDTIME?START DATE TEXT: BEFORE DUODOPA
     Route: 048
  8. PANTOPRAZOLE [Concomitant]
     Active Substance: PANTOPRAZOLE
     Indication: Product used for unknown indication
     Dosage: 1 TABLET?FORM STRENGTH: 20 MILLIGRAM?FREQUENCY TEXT: AT FASTING?START DATE TEXT: BEFORE DUODOPA
     Route: 048
  9. QUETIAPINE [Concomitant]
     Active Substance: QUETIAPINE
     Indication: Product used for unknown indication
     Dosage: 1 TABLET?FORM STRENGTH: 25 MILLIGRAM?START DATE TEXT: BEFORE DUODOPA?FREQUENCY TEXT: AT LUNCH
     Route: 048
  10. QUETIAPINE [Concomitant]
     Active Substance: QUETIAPINE
     Indication: Product used for unknown indication
     Dosage: 1 TABLET?FORM STRENGTH: 50 MILLIGRAM?START DATE TEXT: BEFORE DUODOPA?FREQUENCY TEXT: AT BEDTIME
     Route: 048
  11. DOMPERIDONE [Concomitant]
     Active Substance: DOMPERIDONE
     Indication: Product used for unknown indication
     Dosage: 2 TABLET?FORM STRENGTH: 10 MILLIGRAM?FREQUENCY TEXT: AT FASTING AND AT LUNCH?START DATE TEXT: BEF...
     Route: 048
  12. BISOPROLOL FUMARATE [Concomitant]
     Active Substance: BISOPROLOL FUMARATE
     Indication: Product used for unknown indication
     Dosage: 0.5 TABLET?FORM STRENGTH: 2.5 MILLIGRAM?FREQUENCY TEXT: AT FASTING?START DATE TEXT: BEFORE DUODOPA
     Route: 048
  13. Bekunis [Concomitant]
     Indication: Product used for unknown indication
     Dosage: 5 MG + 105 MG?FREQUENCY TEXT: 1 TABLET AT BEDTIME?START DATE TEXT: BEFORE DUODOPA
     Route: 048
  14. ATORVASTATIN [Concomitant]
     Active Substance: ATORVASTATIN
     Indication: Product used for unknown indication
     Dosage: 1 TABLET?FORM STRENGTH: 20 MILLIGRAM?START DATE TEXT: BEFORE DUODOPA?FREQUENCY TEXT: AT BEDTIME
     Route: 048
  15. BENSERAZIDE HYDROCHLORIDE\LEVODOPA [Concomitant]
     Active Substance: BENSERAZIDE HYDROCHLORIDE\LEVODOPA
     Indication: Product used for unknown indication
     Dosage: 100 MG + 25 MG?FREQUENCY TEXT: 2 TABLETS AT BEDTIME?START DATE TEXT: BEFORE DUODOPA
     Route: 048
  16. ASPIRIN [Concomitant]
     Active Substance: ASPIRIN
     Indication: Product used for unknown indication
     Dosage: 1 TABLET?FORM STRENGTH: 100 MILLIGRAM?FREQUENCY TEXT: AT LUNCH?START DATE TEXT: BEFORE DUODOPA
     Route: 048

REACTIONS (6)
  - Cardio-respiratory arrest [Fatal]
  - Infection [Fatal]
  - Wound secretion [Fatal]
  - Condition aggravated [Fatal]
  - Wound dehiscence [Fatal]
  - Dehiscence [Fatal]

NARRATIVE: CASE EVENT DATE: 20240624
